FAERS Safety Report 6055815-3 (Version None)
Quarter: 2009Q1

REPORT INFORMATION
  Report Type: 
  Country: None (occurrence: None)
  Receive Date: 20090126
  Receipt Date: 20090116
  Transmission Date: 20090719
  Serious: Yes (Life-Threatening, Other)
  Sender: FDA-Public Use
  Company Number: 2009JP000316

PATIENT
  Age: 45 Year
  Sex: Male

DRUGS (7)
  1. TACROLIMUS [Suspect]
     Indication: LUNG TRANSPLANT
     Dosage: 0.3 MG BID;
  2. PREDNISOLONE [Suspect]
     Dosage: 6 MG, /D; 70 MG, /D
  3. ESOMEPRAZOLE MAGNESIUM [Suspect]
     Dosage: 20 MG, /D
  4. PANTOPRAZOLE SODIUM [Suspect]
     Dosage: 40 MG, /D
  5. AZATHIOPRINE [Concomitant]
  6. PANCREATIC ENZYMES (PANCRELIPASE) [Concomitant]
  7. CALCIUM CARBONATE [Concomitant]

REACTIONS (4)
  - HYPERPARATHYROIDISM SECONDARY [None]
  - HYPOCALCAEMIA [None]
  - HYPOMAGNESAEMIA [None]
  - UPPER RESPIRATORY TRACT INFECTION [None]
